FAERS Safety Report 7005779-0 (Version None)
Quarter: 2010Q3

REPORT INFORMATION
  Report Type: 
  Country: None (occurrence: None)
  Receive Date: 20100921
  Receipt Date: 20100915
  Transmission Date: 20110219
  Serious: Yes (Hospitalization)
  Sender: FDA-Public Use
  Company Number: PHHO2010FR11640

PATIENT
  Sex: Male

DRUGS (4)
  1. IMATINIB MESYLATE [Suspect]
     Indication: ACUTE LYMPHOCYTIC LEUKAEMIA
     Dosage: UNK
  2. CORTANCYL [Concomitant]
  3. CRESTOR [Concomitant]
  4. XANAX [Concomitant]

REACTIONS (3)
  - HERPES ZOSTER [None]
  - MUCOSAL INFLAMMATION [None]
  - PAIN [None]
